FAERS Safety Report 14986645 (Version 1)
Quarter: 2018Q2

REPORT INFORMATION
  Report Type: Spontaneous
  Country: None (occurrence: None)
  Receive Date: 20180608
  Receipt Date: 20180608
  Transmission Date: 20180711
  Serious: Yes (Hospitalization, Other)
  Sender: FDA-Public Use
  Company Number: CONCORDIA PHARMACEUTICALS INC.-GSH201806-001895

PATIENT
  Sex: Male

DRUGS (2)
  1. DIGOXIN. [Suspect]
     Active Substance: DIGOXIN
  2. THEOPHYLLINE [Suspect]
     Active Substance: THEOPHYLLINE ANHYDROUS

REACTIONS (6)
  - Myocardial infarction [Unknown]
  - Ventricular arrhythmia [Unknown]
  - Toxicity to various agents [Unknown]
  - Conduction disorder [Unknown]
  - Suicide attempt [Unknown]
  - Cardiac disorder [Unknown]
